FAERS Safety Report 16617380 (Version 1)
Quarter: 2019Q3

REPORT INFORMATION
  Report Type: Spontaneous
  Country: CA (occurrence: CA)
  Receive Date: 20190723
  Receipt Date: 20190723
  Transmission Date: 20191004
  Serious: Yes (Other)
  Sender: FDA-Public Use
  Company Number: CA-PFIZER INC-2019308838

PATIENT
  Age: 73 Year
  Sex: Female

DRUGS (1)
  1. LYRICA [Suspect]
     Active Substance: PREGABALIN
     Indication: BACK PAIN
     Dosage: 225MG, DAILY (75MG AM, 150MG HS)
     Dates: start: 20190527

REACTIONS (2)
  - Nephrolithiasis [Unknown]
  - Adrenal adenoma [Unknown]

NARRATIVE: CASE EVENT DATE: 20190621
